FAERS Safety Report 5215870-7 (Version None)
Quarter: 2007Q1

REPORT INFORMATION
  Report Type: 
  Country: None (occurrence: None)
  Receive Date: 20070123
  Receipt Date: 20070115
  Transmission Date: 20070707
  Serious: Yes (Life-Threatening, Hospitalization)
  Sender: FDA-Public Use
  Company Number: GB-GLAXOSMITHKLINE-B0454959A

PATIENT
  Age: 57 Year
  Sex: Female

DRUGS (4)
  1. AMOXICILLIN [Suspect]
     Indication: MALAISE
     Route: 048
     Dates: start: 20061227, end: 20061227
  2. CODEINE PHOSPHATE [Concomitant]
     Indication: ANALGESIC EFFECT
     Route: 048
  3. LEVOTHYROXINE SODIUM [Concomitant]
     Indication: HYPOTHYROIDISM
     Dosage: 75MCG PER DAY
     Route: 048
  4. PARACETAMOL [Concomitant]
     Indication: ANALGESIC EFFECT
     Dosage: 1G AS REQUIRED
     Route: 048

REACTIONS (9)
  - ANAPHYLACTIC REACTION [None]
  - ANGIOEDEMA [None]
  - CHEST DISCOMFORT [None]
  - HEART RATE INCREASED [None]
  - HYPOTENSION [None]
  - OEDEMA PERIPHERAL [None]
  - PARAESTHESIA [None]
  - URTICARIA [None]
  - WHEEZING [None]
